FAERS Safety Report 9723676 (Version 1)
Quarter: 2013Q4

REPORT INFORMATION
  Report Type: Spontaneous
  Country: GB (occurrence: GB)
  Receive Date: 20131202
  Receipt Date: 20131202
  Transmission Date: 20140711
  Serious: Yes (Hospitalization)
  Sender: FDA-Public Use
  Company Number: GB-GLAXOSMITHKLINE-B0948645A

PATIENT
  Sex: Female

DRUGS (1)
  1. IMIGRAN RECOVERY [Suspect]
     Indication: MIGRAINE
     Route: 048
     Dates: start: 20131105, end: 20131112

REACTIONS (2)
  - Dizziness [Unknown]
  - Loss of consciousness [Recovered/Resolved]
